FAERS Safety Report 17125516 (Version 2)
Quarter: 2020Q2

REPORT INFORMATION
  Report Type: Spontaneous
  Country: US (occurrence: US)
  Receive Date: 20191207
  Receipt Date: 20200630
  Transmission Date: 20200713
  Serious: Yes (Other)
  Sender: FDA-Public Use
  Company Number: US-009507513-1801USA010734

PATIENT
  Sex: Male
  Weight: 69.39 kg

DRUGS (7)
  1. VYTORIN [Suspect]
     Active Substance: EZETIMIBE\SIMVASTATIN
     Indication: TYPE 2 DIABETES MELLITUS
     Dosage: UNK
  2. METFORMIN [Concomitant]
     Active Substance: METFORMIN HYDROCHLORIDE
     Indication: DIABETES MELLITUS
     Dosage: 500 MILLIGRAM, UNK
     Dates: start: 2004
  3. PIOGLITAZONE. [Concomitant]
     Active Substance: PIOGLITAZONE
     Indication: DIABETES MELLITUS
     Dosage: 30 MILLIGRAM, UNK
     Dates: start: 2004
  4. LANTUS [Concomitant]
     Active Substance: INSULIN GLARGINE
     Indication: TYPE 2 DIABETES MELLITUS
     Dosage: 20 UNITS, UNK
     Dates: start: 2004
  5. ZOSTAVAX [Suspect]
     Active Substance: VARICELLA-ZOSTER VIRUS STRAIN OKA/MERCK LIVE ANTIGEN
     Indication: PROPHYLAXIS
     Route: 065
     Dates: start: 20120523, end: 20120523
  6. ESCITALOPRAM [Concomitant]
     Active Substance: ESCITALOPRAM OXALATE
     Indication: DEPRESSION
     Dosage: 20 MILLIGRAM, UNK
     Dates: start: 2004
  7. ZOSTAVAX [Suspect]
     Active Substance: VARICELLA-ZOSTER VIRUS STRAIN OKA/MERCK LIVE ANTIGEN
     Indication: ROUTINE HEALTH MAINTENANCE

REACTIONS (26)
  - Diabetic neuropathy [Not Recovered/Not Resolved]
  - Ankle fracture [Unknown]
  - Gastrooesophageal reflux disease [Unknown]
  - Sleep disorder due to general medical condition, insomnia type [Unknown]
  - Ophthalmic herpes zoster [Unknown]
  - Vaccination failure [Not Recovered/Not Resolved]
  - Anticoagulant therapy [Not Recovered/Not Resolved]
  - Nocturia [Unknown]
  - Joint injury [Unknown]
  - Hypoacusis [Unknown]
  - Drug intolerance [Unknown]
  - Genital erythema [Unknown]
  - Herpes zoster [Not Recovered/Not Resolved]
  - Necrotising retinitis [Unknown]
  - Type V hyperlipidaemia [Unknown]
  - Pruritus genital [Unknown]
  - Erectile dysfunction [Unknown]
  - Glaucoma [Unknown]
  - Iritis [Unknown]
  - Osteoarthritis [Unknown]
  - Blindness [Unknown]
  - Cardiac disorder [Not Recovered/Not Resolved]
  - Vision blurred [Recovered/Resolved]
  - Myositis [Unknown]
  - Peripheral vascular disorder [Unknown]
  - Retinitis viral [Unknown]

NARRATIVE: CASE EVENT DATE: 201205
